APPROVED DRUG PRODUCT: RIVASTIGMINE TARTRATE
Active Ingredient: RIVASTIGMINE TARTRATE
Strength: EQ 6MG BASE
Dosage Form/Route: CAPSULE;ORAL
Application: A203844 | Product #004 | TE Code: AB
Applicant: CADILA PHARMACEUTICALS LTD
Approved: Feb 13, 2017 | RLD: No | RS: No | Type: RX